FAERS Safety Report 4417810-7 (Version None)
Quarter: 2004Q2

REPORT INFORMATION
  Report Type: 
  Country: None (occurrence: None)
  Receive Date: 20040625
  Receipt Date: 20040413
  Transmission Date: 20050107
  Serious: No
  Sender: FDA-Public Use
  Company Number: 2004UW07352

PATIENT
  Age: 39 Year
  Sex: Female
  Weight: 80.7403 kg

DRUGS (3)
  1. MARCAINE [Suspect]
     Indication: ANALGESIC EFFECT
     Dosage: 0.75 %
     Dates: start: 20040207
  2. FENTANYL [Suspect]
     Dosage: 10 MG
  3. MORPHINE [Suspect]
     Dosage: 0.2 MG

REACTIONS (1)
  - DRUG INEFFECTIVE [None]
